FAERS Safety Report 5926448-1 (Version None)
Quarter: 2008Q4

REPORT INFORMATION
  Report Type: 
  Country: None (occurrence: None)
  Receive Date: 20081015
  Receipt Date: 20081007
  Transmission Date: 20090506
  Serious: Yes (Life-Threatening, Other)
  Sender: FDA-Public Use
  Company Number: THYM-11602

PATIENT
  Age: 16 Year
  Sex: Male
  Weight: 75 kg

DRUGS (3)
  1. THYMOGLOBULIN [Suspect]
     Indication: APLASTIC ANAEMIA
     Dosage: 250 MG, QD (3.5 MG/KG/DAY) INTRAVENOUS
     Route: 042
     Dates: start: 20071031, end: 20071031
  2. THYMOGLOBULIN [Suspect]
     Indication: APLASTIC ANAEMIA
     Dosage: 250 MG, QD (3.5 MG/KG/DAY) INTRAVENOUS
     Route: 042
     Dates: start: 20071127, end: 20071127
  3. CYCLOSPORINE [Concomitant]

REACTIONS (15)
  - ANAPHYLACTIC SHOCK [None]
  - ANAPHYLACTOID REACTION [None]
  - BRONCHOSPASM [None]
  - CHEST DISCOMFORT [None]
  - CHILLS [None]
  - COUGH [None]
  - CYANOSIS [None]
  - DYSPNOEA [None]
  - HEADACHE [None]
  - HYPERSENSITIVITY [None]
  - HYPOTENSION [None]
  - INFUSION RELATED REACTION [None]
  - LARYNGITIS [None]
  - NO REACTION ON PREVIOUS EXPOSURE TO DRUG [None]
  - OLIGURIA [None]
